FAERS Safety Report 8952274 (Version 2)
Quarter: 2012Q4

REPORT INFORMATION
  Report Type: Report from Study
  Country: US (occurrence: US)
  Receive Date: 20121205
  Receipt Date: 20121214
  Transmission Date: 20130627
  Serious: Yes (Hospitalization)
  Sender: FDA-Public Use
  Company Number: US-009507513-1211USA011531

PATIENT
  Age: 64 Year
  Sex: Female
  Weight: 59 kg

DRUGS (25)
  1. TEMOZOLOMIDE [Suspect]
     Indication: GLIOBLASTOMA
     Dosage: 320 mg, Days 1-5 of repeated 28 day cycles
     Route: 048
     Dates: start: 20120919, end: 20121110
  2. STUDY DRUG (UNSPECIFIED) [Suspect]
     Indication: GLIOBLASTOMA
     Dosage: 0.8 UNK, UNK
     Dates: start: 20120703, end: 20120912
  3. PANTOPRAZOLE [Concomitant]
  4. HALOPERIDOL [Concomitant]
  5. ENOXAPARIN SODIUM [Concomitant]
  6. CEFTRIAXONE SODIUM [Concomitant]
  7. VANCOMYCIN [Concomitant]
     Indication: ENCEPHALOPATHY
  8. LEVOTHYROXINE SODIUM [Concomitant]
  9. CELECOXIB [Concomitant]
  10. CITALOPRAM [Concomitant]
     Indication: DEPRESSION
  11. CODEINE [Concomitant]
  12. PREDNISONE [Concomitant]
  13. ALPRAZOLAM [Concomitant]
     Indication: DEPRESSION
  14. FLUCONAZOLE [Concomitant]
  15. ACYCLOVIR [Concomitant]
     Indication: ENCEPHALOPATHY
  16. CLINDAMYCIN [Concomitant]
  17. GABAPENTIN [Concomitant]
  18. LEVETIRACETAM [Concomitant]
  19. HEPARIN [Concomitant]
  20. SODIUM CHLORIDE [Concomitant]
  21. ACETAMINOPHEN [Concomitant]
  22. NYSTATIN [Concomitant]
  23. ONDANSETRON [Concomitant]
  24. PHENYTOIN [Concomitant]
  25. ESCITALOPRAM OXALATE [Suspect]
     Indication: DEPRESSION

REACTIONS (1)
  - Urosepsis [Recovering/Resolving]
